FAERS Safety Report 8912943 (Version 1)
Quarter: 2012Q4

REPORT INFORMATION
  Report Type: 
  Country: US (occurrence: US)
  Receive Date: 20121115
  Receipt Date: 20121115
  Transmission Date: 20130627
  Serious: No
  Sender: FDA-Public Use
  Company Number: US-B.I. PHARMACEUTICALS,INC./RIDGEFIELD-2012-BI-00361BP

PATIENT
  Age: 65 Year
  Sex: Male

DRUGS (10)
  1. SPIRIVA [Suspect]
     Indication: CHRONIC OBSTRUCTIVE PULMONARY DISEASE
     Dosage: 18 mcg
     Route: 055
  2. SYMBICORT [Concomitant]
  3. FORADIL [Concomitant]
  4. QVAR [Concomitant]
  5. SINGULAIR [Concomitant]
  6. PREDNISONE [Concomitant]
  7. THEOPHYLLINE [Concomitant]
  8. XOLAIR [Concomitant]
  9. DUONEB [Concomitant]
  10. ALBUTEROL [Concomitant]

REACTIONS (1)
  - Wheezing [Unknown]
